FAERS Safety Report 7835313-4 (Version None)
Quarter: 2011Q4

REPORT INFORMATION
  Report Type: 
  Country: None (occurrence: None)
  Receive Date: 20111020
  Receipt Date: 20111011
  Transmission Date: 20120403
  Serious: Yes (Disabling)
  Sender: FDA-Public Use
  Company Number: AUR-APL-2011-05497

PATIENT
  Age: 79 Year
  Sex: Female
  Weight: 57.5 kg

DRUGS (6)
  1. CALCICHEW-D3 (LEKOVIT CA) [Concomitant]
  2. ATORVASTATIN [Concomitant]
  3. RAMIPRIL [Concomitant]
  4. ALENDRONATE SODIUM [Suspect]
     Indication: PRODUCT USED FOR UNKNOWN INDICATION
     Dates: start: 20110905
  5. CARBOMER [Concomitant]
  6. ACETAMINOPHEN [Concomitant]

REACTIONS (1)
  - EPIGASTRIC DISCOMFORT [None]
